FAERS Safety Report 8444187-2 (Version None)
Quarter: 2012Q2

REPORT INFORMATION
  Report Type: 
  Country: None (occurrence: None)
  Receive Date: 20120618
  Receipt Date: 20120608
  Transmission Date: 20120825
  Serious: Yes (Other)
  Sender: FDA-Public Use
  Company Number: FR-ASTRAZENECA-2012SE39196

PATIENT
  Age: 644 Month
  Sex: Female

DRUGS (4)
  1. BENZODIAZEPINE [Concomitant]
  2. ANTIDEPRESSANT [Concomitant]
  3. QUETIAPINE FUMARATE [Suspect]
     Indication: DEPRESSION
     Route: 048
     Dates: start: 20120101, end: 20120401
  4. ANTIHYPERTENSIVE MEDICATION [Concomitant]

REACTIONS (1)
  - HEPATIC STEATOSIS [None]
